FAERS Safety Report 7643641-0 (Version None)
Quarter: 2011Q3

REPORT INFORMATION
  Report Type: 
  Country: None (occurrence: None)
  Receive Date: 20110729
  Receipt Date: 20110721
  Transmission Date: 20111222
  Serious: No
  Sender: FDA-Public Use
  Company Number: NL-ASTELLAS-2011EU003259

PATIENT
  Sex: Male

DRUGS (7)
  1. TACROLIMUS [Suspect]
     Dosage: 1 %, 1 TO 2 TIMES PER MONTH
     Route: 061
  2. SERETIDE [Concomitant]
     Indication: ASTHMA
     Dosage: UNK
     Route: 065
  3. TACROLIMUS [Suspect]
     Indication: DERMATITIS ATOPIC
     Dosage: 0.1 %, UNKNOWN/D
     Route: 061
     Dates: start: 20000221
  4. FLIXONASE [Concomitant]
     Indication: HYPERSENSITIVITY
     Dosage: UNK
     Route: 065
  5. ELIDEL [Concomitant]
     Indication: ECZEMA
     Dosage: UNK
     Route: 061
  6. ELOCON [Concomitant]
     Indication: ECZEMA
     Dosage: UNK
     Route: 061
  7. TRIAMCINOLONE [Concomitant]
     Indication: ECZEMA
     Dosage: UNK
     Route: 061

REACTIONS (2)
  - LYMPHADENOPATHY [None]
  - HEADACHE [None]
